FAERS Safety Report 8535091-X (Version None)
Quarter: 2012Q3

REPORT INFORMATION
  Report Type: 
  Country: None (occurrence: None)
  Receive Date: 20120724
  Receipt Date: 20120719
  Transmission Date: 20120928
  Serious: Yes (Hospitalization, Other)
  Sender: FDA-Public Use
  Company Number: US-PFIZER INC-9301115

PATIENT
  Age: 42 Year
  Sex: Male
  Weight: 59.87 kg

DRUGS (4)
  1. DIFLUCAN [Suspect]
     Indication: OROPHARYNGEAL CANDIDIASIS
     Dosage: 200 MG DAILY
     Route: 048
     Dates: start: 19921125, end: 19930125
  2. DIFLUCAN [Interacting]
     Indication: ILL-DEFINED DISORDER
  3. TETRACYCLINE [Concomitant]
     Indication: ACNE
     Dosage: 250 MG, 4X/DAY
     Route: 048
     Dates: start: 19921119, end: 19930128
  4. PHENYTOIN [Interacting]
     Indication: CONVULSION
     Dosage: DAILY
     Route: 048
     Dates: start: 19920925, end: 19930125

REACTIONS (11)
  - LETHARGY [None]
  - VOMITING [None]
  - VERTIGO [None]
  - ABDOMINAL PAIN [None]
  - NYSTAGMUS [None]
  - LIVER FUNCTION TEST ABNORMAL [None]
  - DRUG INTERACTION [None]
  - ATAXIA [None]
  - NAUSEA [None]
  - TOXICITY TO VARIOUS AGENTS [None]
  - DIZZINESS [None]
